FAERS Safety Report 9096078 (Version 1)
Quarter: 2013Q1

REPORT INFORMATION
  Report Type: Spontaneous
  Country: US (occurrence: US)
  Receive Date: 20130207
  Receipt Date: 20130207
  Transmission Date: 20140127
  Serious: Yes (Hospitalization, Other)
  Sender: FDA-Public Use
  Company Number: US-BAYER-2013-014928

PATIENT
  Age: 39 Year
  Sex: Female

DRUGS (1)
  1. MIRENA [Suspect]
     Dosage: 20 MCG/24HR, CONT
     Route: 015
     Dates: start: 2011

REACTIONS (11)
  - Simple partial seizures [None]
  - Fall [None]
  - Convulsion [None]
  - Convulsion [None]
  - Hypoaesthesia [None]
  - Hypoaesthesia [None]
  - Feeling abnormal [None]
  - Hearing impaired [None]
  - Paraesthesia [None]
  - Device dislocation [None]
  - Seizure cluster [None]
